FAERS Safety Report 12006284 (Version 2)
Quarter: 2016Q3

REPORT INFORMATION
  Report Type: Spontaneous
  Country: US (occurrence: US)
  Receive Date: 20160205
  Receipt Date: 20160825
  Transmission Date: 20161109
  Serious: Yes (Other)
  Sender: FDA-Public Use
  Company Number: US-BRISTOL-MYERS SQUIBB COMPANY-BMS-2003-000015

PATIENT
  Sex: Female

DRUGS (2)
  1. GLUCOPHAGE [Suspect]
     Active Substance: METFORMIN HYDROCHLORIDE
     Indication: INSULIN RESISTANCE
     Dosage: 500 MG, BID
     Route: 065
     Dates: start: 20030214, end: 20030914
  2. ALDOMET [Concomitant]
     Active Substance: METHYLDOPA
     Indication: PRODUCT USED FOR UNKNOWN INDICATION
     Dosage: 500 MG, QD
     Route: 065
     Dates: start: 20030224, end: 20030914

REACTIONS (3)
  - Maternal exposure during pregnancy [Recovered/Resolved]
  - Live birth [Unknown]
  - Gestational hypertension [Unknown]

NARRATIVE: CASE EVENT DATE: 20030914
